FAERS Safety Report 7540390-4 (Version None)
Quarter: 2011Q2

REPORT INFORMATION
  Report Type: 
  Country: None (occurrence: None)
  Receive Date: 20110610
  Receipt Date: 20110606
  Transmission Date: 20111010
  Serious: Yes (Death, Other)
  Sender: FDA-Public Use
  Company Number: NO-SANOFI-AVENTIS-2011SA005632

PATIENT
  Age: 54 Year
  Sex: Female

DRUGS (4)
  1. TAXOTERE [Suspect]
     Indication: BREAST CANCER
     Route: 042
     Dates: start: 20110103, end: 20110103
  2. KALETRA [Suspect]
     Indication: HIV INFECTION
     Route: 065
     Dates: start: 20010101
  3. ABACAVIR SULFATE AND LAMIVUDINE [Concomitant]
     Indication: HIV INFECTION
     Route: 048
     Dates: start: 20010101
  4. MYCOSTATIN [Concomitant]
     Route: 048
     Dates: end: 20110109

REACTIONS (6)
  - BACTERIAL SEPSIS [None]
  - SKIN TOXICITY [None]
  - NEUTROPENIA [None]
  - DEATH [None]
  - MULTI-ORGAN FAILURE [None]
  - DRUG INTERACTION [None]
